FAERS Safety Report 24279727 (Version 1)
Quarter: 2024Q3

REPORT INFORMATION
  Report Type: Report from Study
  Country: US (occurrence: US)
  Receive Date: 20240904
  Receipt Date: 20240904
  Transmission Date: 20241017
  Serious: No
  Sender: ROCHE
  Company Number: US-ROCHE-10000065475

PATIENT
  Sex: Female

DRUGS (8)
  1. OCRELIZUMAB [Suspect]
     Active Substance: OCRELIZUMAB
     Indication: Relapsing-remitting multiple sclerosis
     Route: 065
     Dates: start: 20190612
  2. RITUXAN [Concomitant]
     Active Substance: RITUXIMAB
  3. FLUOXETINE [Concomitant]
     Active Substance: FLUOXETINE HYDROCHLORIDE
  4. VILAZODONE [Concomitant]
     Active Substance: VILAZODONE
     Dosage: 1/2 TABLET DAILY
  5. LEVETIRACETAM [Concomitant]
     Active Substance: LEVETIRACETAM
     Dosage: 1 TAB TWICE DAILY
  6. LORAZEPAM [Concomitant]
     Active Substance: LORAZEPAM
     Dosage: 1 TAB AS NEEDED
  7. LORYNA [Concomitant]
     Active Substance: DROSPIRENONE\ETHINYL ESTRADIOL
  8. FISH OIL [Concomitant]
     Active Substance: FISH OIL

REACTIONS (6)
  - Seizure [Unknown]
  - Anxiety [Unknown]
  - COVID-19 [Unknown]
  - Magnetic resonance imaging head abnormal [Unknown]
  - Pineal gland cyst [Unknown]
  - Multiple sclerosis [Unknown]
